FAERS Safety Report 8045735-7 (Version None)
Quarter: 2012Q1

REPORT INFORMATION
  Report Type: 
  Country: None (occurrence: None)
  Receive Date: 20120113
  Receipt Date: 20120109
  Transmission Date: 20120608
  Serious: Yes (Hospitalization, Other)
  Sender: FDA-Public Use
  Company Number: PHEH2011US08510

PATIENT
  Sex: Female

DRUGS (6)
  1. VITAMIN C [Concomitant]
     Dosage: UNK UKN, UNK
  2. IRON [Concomitant]
     Dosage: UNK UKN, UNK
  3. VITAMIN D [Concomitant]
     Dosage: UNK UKN, UNK
  4. ASPIRIN [Concomitant]
     Dosage: UNK UKN, UNK
  5. CALCIUM [Concomitant]
     Dosage: UNK UKN, UNK
  6. RECLAST [Suspect]
     Indication: OSTEOPOROSIS
     Dosage: 5 MG / 100 ML, YEARLY
     Route: 042
     Dates: start: 20111004

REACTIONS (12)
  - MYALGIA [None]
  - PELVIC FRACTURE [None]
  - BONE PAIN [None]
  - DEHYDRATION [None]
  - TONGUE DISORDER [None]
  - PAIN [None]
  - PAIN IN EXTREMITY [None]
  - ARTHRALGIA [None]
  - VOMITING [None]
  - FRACTURED COCCYX [None]
  - GENERAL PHYSICAL HEALTH DETERIORATION [None]
  - APHAGIA [None]
